FAERS Safety Report 10279511 (Version 3)
Quarter: 2014Q3

REPORT INFORMATION
  Report Type: Spontaneous
  Country: JP (occurrence: JP)
  Receive Date: 20140707
  Receipt Date: 20140918
  Transmission Date: 20150326
  Serious: Yes (Hospitalization)
  Sender: FDA-Public Use
  Company Number: JP-ELI_LILLY_AND_COMPANY-JP201407000076

PATIENT
  Sex: Male
  Weight: 48.3 kg

DRUGS (5)
  1. ALIMTA [Suspect]
     Active Substance: PEMETREXED DISODIUM
     Indication: NON-SMALL CELL LUNG CANCER
     Dosage: 760 MG, 3/W
     Route: 042
     Dates: start: 20140218, end: 20140604
  2. AVASTIN [Suspect]
     Active Substance: BEVACIZUMAB
     Indication: NON-SMALL CELL LUNG CANCER
     Dosage: 370 MG, 3/W
     Route: 042
     Dates: start: 20140401, end: 20140604
  3. FRESMIN S [Concomitant]
     Active Substance: HYDROXOCOBALAMIN
     Route: 030
  4. PANVITAN [Concomitant]
     Route: 048
  5. CISPLATIN. [Concomitant]
     Active Substance: CISPLATIN
     Route: 042

REACTIONS (1)
  - Cardiomyopathy [Not Recovered/Not Resolved]
